FAERS Safety Report 20193642 (Version 1)
Quarter: 2021Q4

REPORT INFORMATION
  Report Type: Spontaneous
  Country: AU (occurrence: AU)
  Receive Date: 20211216
  Receipt Date: 20211216
  Transmission Date: 20220303
  Serious: Yes (Life-Threatening, Other)
  Sender: FDA-Public Use
  Company Number: AU-ALK-ABELLO A/S-2021AA004812

PATIENT

DRUGS (2)
  1. ACARIZAX [Suspect]
     Active Substance: DERMATOPHAGOIDES FARINAE\DERMATOPHAGOIDES PTERONYSSINUS
     Indication: Product used for unknown indication
     Dosage: 12 SQ-HDM
  2. FLIXOTIDE                          /00972201/ [Concomitant]

REACTIONS (4)
  - Anaphylactoid reaction [Unknown]
  - Diarrhoea [Unknown]
  - Paraesthesia [Unknown]
  - Oropharyngeal pain [Unknown]

NARRATIVE: CASE EVENT DATE: 20211001
